FAERS Safety Report 18618607 (Version 1)
Quarter: 2020Q4

REPORT INFORMATION
  Report Type: Spontaneous
  Country: US (occurrence: US)
  Receive Date: 20201215
  Receipt Date: 20201215
  Transmission Date: 20210114
  Serious: No
  Sender: FDA-Public Use
  Company Number: US-TEVA-2020-US-1857624

PATIENT
  Sex: Male

DRUGS (1)
  1. BUTALBITAL, ASPIRIN AND CAFFEINE TEVA [Suspect]
     Active Substance: ASPIRIN\BUTALBITAL\CAFFEINE
     Indication: HEADACHE
     Dosage: BUTALBITAL / ASPIRIN / CAFFEINE - 50 MG / 325 MG / 40 MG RESPECTIVELY
     Route: 065
     Dates: start: 202011

REACTIONS (1)
  - Drug ineffective [Unknown]

NARRATIVE: CASE EVENT DATE: 2020
